FAERS Safety Report 7010893-X (Version None)
Quarter: 2010Q3

REPORT INFORMATION
  Report Type: 
  Country: None (occurrence: None)
  Receive Date: 20100923
  Receipt Date: 20100923
  Transmission Date: 20110219
  Serious: Yes (Other)
  Sender: FDA-Public Use
  Company Number: None

PATIENT
  Sex: Female
  Weight: 56.6996 kg

DRUGS (1)
  1. VESICARE [Suspect]
     Indication: HYPERTONIC BLADDER
     Dosage: 5 MG 1 DAILY MOUTH
     Route: 048
     Dates: start: 20091201

REACTIONS (11)
  - APHTHOUS STOMATITIS [None]
  - DRY EYE [None]
  - DRY MOUTH [None]
  - DYSPNOEA [None]
  - HEADACHE [None]
  - HEART RATE IRREGULAR [None]
  - PHOTOPHOBIA [None]
  - PRURITUS [None]
  - STOMATITIS [None]
  - VISION BLURRED [None]
  - VULVOVAGINAL DRYNESS [None]
